FAERS Safety Report 16676878 (Version 1)
Quarter: 2019Q3

REPORT INFORMATION
  Report Type: Spontaneous
  Country: GB (occurrence: GB)
  Receive Date: 20190807
  Receipt Date: 20190807
  Transmission Date: 20191004
  Serious: Yes (Hospitalization)
  Sender: FDA-Public Use
  Company Number: GB-ACCORD-150465

PATIENT
  Age: 75 Year
  Sex: Female

DRUGS (8)
  1. SERTRALINE [Suspect]
     Active Substance: SERTRALINE HYDROCHLORIDE
     Indication: DEPRESSION
     Route: 048
     Dates: start: 20190710
  2. LANSOPRAZOLE. [Concomitant]
     Active Substance: LANSOPRAZOLE
  3. ACIDEX [Concomitant]
     Active Substance: CALCIUM CARBONATE\SODIUM ALGINATE\SODIUM BICARBONATE
  4. PARACETAMOL [Concomitant]
     Active Substance: ACETAMINOPHEN
  5. CO-DYDRAMOL [Concomitant]
     Active Substance: ACETAMINOPHEN\DIHYDROCODEINE
  6. POLYVINYL ALCOHOL [Concomitant]
     Active Substance: POLYVINYL ALCOHOL
     Route: 047
  7. AMLODIPINE [Concomitant]
     Active Substance: AMLODIPINE BESYLATE
  8. SIMVASTATIN. [Concomitant]
     Active Substance: SIMVASTATIN

REACTIONS (5)
  - Dizziness [Not Recovered/Not Resolved]
  - Nausea [Not Recovered/Not Resolved]
  - Syncope [Not Recovered/Not Resolved]
  - Dyspnoea [Unknown]
  - Abdominal pain upper [Unknown]

NARRATIVE: CASE EVENT DATE: 20190710
